FAERS Safety Report 5628892-9 (Version None)
Quarter: 2008Q1

REPORT INFORMATION
  Report Type: 
  Country: None (occurrence: None)
  Receive Date: 20080215
  Receipt Date: 20080205
  Transmission Date: 20080703
  Serious: Yes (Other)
  Sender: FDA-Public Use
  Company Number: FR-PFIZER INC-2008013904

PATIENT
  Age: 71 Year
  Sex: Male

DRUGS (4)
  1. TAHOR [Suspect]
  2. INSULIN [Concomitant]
  3. METFORMIN HYDROCHLORIDE [Concomitant]
  4. IRBESARTAN [Concomitant]

REACTIONS (3)
  - DRUG HYPERSENSITIVITY [None]
  - SKIN LESION [None]
  - VASCULITIS [None]
